FAERS Safety Report 16342194 (Version 3)
Quarter: 2020Q3

REPORT INFORMATION
  Report Type: Spontaneous
  Country: US (occurrence: US)
  Receive Date: 20190522
  Receipt Date: 20200822
  Transmission Date: 20201102
  Serious: Yes (Other)
  Sender: FDA-Public Use
  Company Number: US-GILEAD-2019-0409045

PATIENT
  Sex: Female

DRUGS (1)
  1. ATRIPLA [Suspect]
     Active Substance: EFAVIRENZ\EMTRICITABINE\TENOFOVIR DISOPROXIL FUMARATE
     Indication: HIV INFECTION
     Dosage: UNK
     Route: 048
     Dates: start: 2013, end: 2019

REACTIONS (9)
  - Renal failure [Not Recovered/Not Resolved]
  - Bone density decreased [Not Recovered/Not Resolved]
  - Vitamin D deficiency [Not Recovered/Not Resolved]
  - Tooth loss [Unknown]
  - Bone loss [Unknown]
  - Fanconi syndrome acquired [Not Recovered/Not Resolved]
  - Fracture [Unknown]
  - Chronic kidney disease [Unknown]
  - Osteonecrosis [Unknown]
